FAERS Safety Report 5570943-4 (Version None)
Quarter: 2007Q4

REPORT INFORMATION
  Report Type: 
  Country: None (occurrence: None)
  Receive Date: 20071221
  Receipt Date: 20071213
  Transmission Date: 20080405
  Serious: Yes (Other)
  Sender: FDA-Public Use
  Company Number: JP-JNJFOC-20070704723

PATIENT
  Sex: Male
  Weight: 22.68 kg

DRUGS (19)
  1. ITRACONAZOLE [Suspect]
     Route: 048
  2. ITRACONAZOLE [Suspect]
     Indication: BRONCHOPULMONARY ASPERGILLOSIS
     Route: 048
  3. MUCODYNE [Concomitant]
     Indication: BRONCHOPULMONARY ASPERGILLOSIS
     Route: 048
  4. SELBEX [Concomitant]
     Indication: GASTRIC ULCER
     Route: 048
  5. RANIMERCK [Concomitant]
     Indication: GASTRIC ULCER
     Route: 048
  6. FAMOTIDINE [Concomitant]
     Indication: GASTRIC ULCER
     Route: 048
  7. DIHYDROCODEINE-EPHEDRIN COMBINED DRUG [Concomitant]
     Indication: BRONCHOPULMONARY ASPERGILLOSIS
     Route: 048
  8. MAGNESIUM OXIDE [Concomitant]
     Indication: CONSTIPATION
     Route: 048
  9. CEFZON [Concomitant]
     Route: 048
  10. CEFZON [Concomitant]
     Indication: PHARYNGITIS
     Route: 048
  11. LOXONIN [Concomitant]
     Route: 048
  12. LOXONIN [Concomitant]
     Route: 048
  13. LOXONIN [Concomitant]
     Indication: PHARYNGITIS
     Route: 048
  14. FLOMOX [Concomitant]
     Indication: PHARYNGITIS
     Route: 048
  15. KLARICID [Concomitant]
     Indication: BRONCHITIS
     Route: 048
  16. KLARICID [Concomitant]
     Indication: PHARYNGITIS
     Route: 048
  17. NON-PYRINE COLD PREPARATION [Concomitant]
     Indication: BRONCHITIS
     Route: 048
  18. S ADCHNON [Concomitant]
     Indication: HAEMOPTYSIS
     Route: 048
  19. TRANSAMIN [Concomitant]
     Indication: HAEMOPTYSIS
     Route: 048

REACTIONS (4)
  - HYPOXIA [None]
  - LUNG DISORDER [None]
  - LYMPHOCYTE STIMULATION TEST POSITIVE [None]
  - PNEUMONIA [None]
